FAERS Safety Report 4518713-X (Version None)
Quarter: 2004Q4

REPORT INFORMATION
  Report Type: 
  Country: None (occurrence: None)
  Receive Date: 20041201
  Receipt Date: 20041118
  Transmission Date: 20050328
  Serious: Yes (Other)
  Sender: FDA-Public Use
  Company Number: 2004-UK-01200UK

PATIENT
  Age: 62 Year
  Sex: Female

DRUGS (5)
  1. NEVIRAPINE (00015/0215/A) (NEVIRAPINE) (NR) [Suspect]
     Indication: HIV INFECTION
     Dosage: 400 MG (200 MG/TWICE DAILY), PO
     Route: 048
  2. VIRUS INFLUENZA (NR) [Suspect]
     Indication: INFLUENZA
     Dosage: SC, ONCE
     Route: 058
     Dates: start: 20041101, end: 20041101
  3. COMBIVIR [Suspect]
     Indication: HIV INFECTION
     Dosage: 2 ANZ (1 ANZ, TWICE DAILY), PO
     Route: 048
  4. BACTRIM [Suspect]
     Indication: HIV INFECTION
     Dosage: 480 MG (NR, ONCE DAILY), PO
     Route: 048
  5. LANSOPRAZOLE (NR) [Suspect]
     Indication: HIV INFECTION
     Dosage: 30 MG (NR, ONCE DAILY), PO
     Route: 048

REACTIONS (2)
  - DRUG INTERACTION [None]
  - INJECTION SITE SWELLING [None]
